FAERS Safety Report 5951472-2 (Version None)
Quarter: 2008Q4

REPORT INFORMATION
  Report Type: 
  Country: None (occurrence: None)
  Receive Date: 20081111
  Receipt Date: 20081111
  Transmission Date: 20090506
  Serious: Yes (Hospitalization)
  Sender: FDA-Public Use
  Company Number: None

PATIENT
  Sex: Female
  Weight: 97 kg

DRUGS (14)
  1. CISPLATIN [Suspect]
     Dosage: 455.6 MG
  2. ETOPOSIDE [Suspect]
     Dosage: 2733.6 MG
  3. G-CSF (FILGRASTIM, AMGEN) [Suspect]
     Dosage: 9420 MCG
  4. NEULASTA [Suspect]
     Dosage: 12 MG
  5. DETROL LA [Concomitant]
  6. IBUPROFEN TABLETS [Concomitant]
  7. LEVAQUIN [Concomitant]
  8. LEXAPRO [Concomitant]
  9. NEXIUM [Concomitant]
  10. NORCO [Concomitant]
  11. PLAVIX [Concomitant]
  12. ROBITUSSIN + ALBUTEROL [Concomitant]
  13. TRENTAL [Concomitant]
  14. ZOCOR [Concomitant]

REACTIONS (6)
  - ATELECTASIS [None]
  - BACK PAIN [None]
  - DEPRESSION [None]
  - DYSPNOEA [None]
  - LUNG CONSOLIDATION [None]
  - PAIN [None]
